FAERS Safety Report 24895155 (Version 1)
Quarter: 2025Q1

REPORT INFORMATION
  Report Type: Spontaneous
  Country: PT (occurrence: PT)
  Receive Date: 20250128
  Receipt Date: 20250128
  Transmission Date: 20250408
  Serious: Yes (Hospitalization, Other)
  Sender: IPSEN BIOPHARMACEUTICALS, INC.
  Company Number: PT-IPSEN Group, Research and Development-2025-01867

PATIENT
  Age: 57 Year
  Sex: Male

DRUGS (1)
  1. LANREOTIDE ACETATE [Suspect]
     Active Substance: LANREOTIDE ACETATE
     Indication: Neuroendocrine tumour
     Route: 065

REACTIONS (3)
  - Malignant neoplasm progression [Unknown]
  - Post procedural infection [Unknown]
  - Bacterial infection [Unknown]
